FAERS Safety Report 9781650 (Version 1)
Quarter: 2013Q4

REPORT INFORMATION
  Report Type: Spontaneous
  Country: US (occurrence: US)
  Receive Date: 20131224
  Receipt Date: 20131224
  Transmission Date: 20140711
  Serious: No
  Sender: FDA-Public Use
  Company Number: US-BAYER-2013-155796

PATIENT
  Age: 55 Year
  Sex: Male
  Weight: 74.83 kg

DRUGS (1)
  1. ALEVE TABLET [Suspect]
     Indication: CARPAL TUNNEL SYNDROME
     Dosage: 1 DF, PRN
     Route: 048

REACTIONS (3)
  - Expired drug administered [None]
  - Off label use [None]
  - Abdominal pain upper [Recovered/Resolved]
